FAERS Safety Report 9325692 (Version 2)
Quarter: 2013Q2

REPORT INFORMATION
  Report Type: Spontaneous
  Country: IT (occurrence: IT)
  Receive Date: 20130604
  Receipt Date: 20130618
  Transmission Date: 20140414
  Serious: Yes (Death)
  Sender: FDA-Public Use
  Company Number: IT-GENZYME-CERZ-1003036

PATIENT
  Age: 65 Year
  Sex: Female
  Weight: 70 kg

DRUGS (3)
  1. CEREZYME [Suspect]
     Indication: GAUCHER^S DISEASE
     Dosage: 34.2 U/KG, Q2W
     Route: 042
     Dates: start: 20130523, end: 20130523
  2. METRONIDAZOLE [Concomitant]
     Indication: PRODUCT USED FOR UNKNOWN INDICATION
     Dosage: 250 MG, TID
     Route: 065
  3. METOCLOPRAMIDE HYDROCHLORIDE [Concomitant]
     Dosage: 1 VIAL
     Route: 065

REACTIONS (2)
  - Anuria [Fatal]
  - Cardiac failure congestive [Fatal]
